FAERS Safety Report 4516255-9 (Version None)
Quarter: 2004Q4

REPORT INFORMATION
  Report Type: 
  Country: None (occurrence: None)
  Receive Date: 20041129
  Receipt Date: 20041111
  Transmission Date: 20050328
  Serious: Yes (Hospitalization)
  Sender: FDA-Public Use
  Company Number: 2004091613

PATIENT
  Age: 76 Year
  Sex: Female
  Weight: 50.8029 kg

DRUGS (4)
  1. DETROL LA [Suspect]
     Indication: HYPERTONIC BLADDER
     Dosage: 2 MG, QD INTERVAL EVERY DAY 2 MG), ORAL
     Route: 048
     Dates: start: 20030601
  2. CELEXA [Suspect]
     Indication: DEPRESSION
     Dates: start: 20031201
  3. SINEMET [Concomitant]
  4. PRILOSEC OTC (OMEPRAZOLE) [Concomitant]

REACTIONS (11)
  - CONFUSIONAL STATE [None]
  - DRUG INTERACTION [None]
  - FALL [None]
  - HALLUCINATION [None]
  - HYPERSENSITIVITY [None]
  - LETHARGY [None]
  - MENTAL DISORDER [None]
  - NOCTURIA [None]
  - PELVIC FRACTURE [None]
  - SOMNOLENCE [None]
  - WALKING AID USER [None]
